FAERS Safety Report 7812422-7 (Version None)
Quarter: 2011Q4

REPORT INFORMATION
  Report Type: 
  Country: None (occurrence: None)
  Receive Date: 20111011
  Receipt Date: 20101003
  Transmission Date: 20120403
  Serious: No
  Sender: FDA-Public Use
  Company Number: 2011SP033117

PATIENT
  Age: 29 Year
  Sex: Female
  Weight: 61 kg

DRUGS (3)
  1. SPASFON [Concomitant]
  2. NUVARING [Suspect]
     Dates: start: 20101203
  3. KETOPROFEN [Concomitant]

REACTIONS (4)
  - VULVOVAGINAL DISCOMFORT [None]
  - DEVICE DISLOCATION [None]
  - ABORTION SPONTANEOUS [None]
  - PREGNANCY WITH CONTRACEPTIVE DEVICE [None]
